FAERS Safety Report 8875983 (Version 2)
Quarter: 2012Q4

REPORT INFORMATION
  Report Type: 
  Country: US (occurrence: US)
  Receive Date: 20121030
  Receipt Date: 20121102
  Transmission Date: 20130627
  Serious: Yes (Hospitalization)
  Sender: FDA-Public Use
  Company Number: PHHY2012US095185

PATIENT
  Age: 41 Year
  Sex: Female

DRUGS (4)
  1. HEPARIN [Suspect]
     Indication: ANTICOAGULANT THERAPY
  2. ACETYLSALICYLIC ACID [Suspect]
     Indication: ANTICOAGULANT THERAPY
  3. ENOXAPARIN SODIUM [Suspect]
     Indication: ANTICOAGULANT THERAPY
  4. WARFARIN [Suspect]
     Indication: ANTICOAGULANT THERAPY

REACTIONS (9)
  - Haemodynamic instability [Recovered/Resolved]
  - Intestinal ischaemia [Recovered/Resolved]
  - Intestinal obstruction [Recovered/Resolved]
  - Thrombosis [Recovered/Resolved]
  - Coronary artery occlusion [Recovered/Resolved]
  - Gastrointestinal haemorrhage [Recovered/Resolved]
  - Haematochezia [Recovered/Resolved]
  - Haematoma [Recovered/Resolved]
  - Pulmonary embolism [Recovered/Resolved]
